FAERS Safety Report 6917626-3 (Version None)
Quarter: 2010Q3

REPORT INFORMATION
  Report Type: 
  Country: None (occurrence: None)
  Receive Date: 20100810
  Receipt Date: 20100730
  Transmission Date: 20110219
  Serious: Yes (Other)
  Sender: FDA-Public Use
  Company Number: US-JNJCH-2010017916

PATIENT
  Age: 70 Year
  Sex: Female
  Weight: 68 kg

DRUGS (1)
  1. LISTERINE WHITENING PRE-BRUSH RINSE [Suspect]
     Indication: DENTAL CARE
     Dosage: TEXT:1 TSP 1X PER DAY
     Route: 048
     Dates: start: 20100501, end: 20100723

REACTIONS (2)
  - LIP EXFOLIATION [None]
  - ORAL MUCOSAL EXFOLIATION [None]
